FAERS Safety Report 12659076 (Version 1)
Quarter: 2016Q3

REPORT INFORMATION
  Report Type: Spontaneous
  Country: CA (occurrence: CA)
  Receive Date: 20160817
  Receipt Date: 20160817
  Transmission Date: 20161109
  Serious: Yes (Other)
  Sender: FDA-Public Use
  Company Number: CA-ABBVIE-16P-028-1703605-00

PATIENT
  Sex: Female

DRUGS (1)
  1. BIAXIN [Suspect]
     Active Substance: CLARITHROMYCIN
     Indication: RESPIRATORY TRACT INFECTION
     Route: 065

REACTIONS (11)
  - Toxicity to various agents [Unknown]
  - Sleep disorder [Unknown]
  - Hallucination, auditory [Unknown]
  - Vomiting [Unknown]
  - Feeling abnormal [Unknown]
  - Anxiety [Unknown]
  - Asthenia [Unknown]
  - Chest discomfort [Unknown]
  - Dyspnoea [Unknown]
  - Heart rate irregular [Unknown]
  - Palpitations [Unknown]
